FAERS Safety Report 5057104-2 (Version None)
Quarter: 2006Q3

REPORT INFORMATION
  Report Type: 
  Country: None (occurrence: None)
  Receive Date: 20060718
  Receipt Date: 20060525
  Transmission Date: 20061208
  Serious: Yes (Other)
  Sender: FDA-Public Use
  Company Number: 2006030421

PATIENT
  Age: 76 Year
  Sex: Female

DRUGS (1)
  1. BEXTRA [Suspect]
     Indication: BURSITIS
     Dosage: 10 MG (10 MG, 1 IN 1 D),
     Dates: start: 20050323, end: 20050329

REACTIONS (2)
  - STEVENS-JOHNSON SYNDROME [None]
  - URTICARIA [None]
